FAERS Safety Report 10182314 (Version 2)
Quarter: 2014Q4

REPORT INFORMATION
  Report Type: Report from Study
  Country: US (occurrence: US)
  Receive Date: 20140520
  Receipt Date: 20141218
  Transmission Date: 20150528
  Serious: No
  Sender: FDA-Public Use
  Company Number: US-ALEXION-A201401905

PATIENT

DRUGS (1)
  1. SOLIRIS [Suspect]
     Active Substance: ECULIZUMAB
     Indication: HAEMOLYTIC URAEMIC SYNDROME
     Dosage: 300 MG, EVERY 90 DAYS
     Route: 042
     Dates: start: 20120626

REACTIONS (3)
  - Blood creatinine increased [Unknown]
  - Abdominal pain [Not Recovered/Not Resolved]
  - Proteinuria [Unknown]
